FAERS Safety Report 7387354-1 (Version None)
Quarter: 2011Q1

REPORT INFORMATION
  Report Type: 
  Country: None (occurrence: None)
  Receive Date: 20110331
  Receipt Date: 20110323
  Transmission Date: 20110831
  Serious: Yes (Hospitalization)
  Sender: FDA-Public Use
  Company Number: PHHO2011IT05236

PATIENT
  Sex: Male
  Weight: 88 kg

DRUGS (14)
  1. ALLOPURINOL [Concomitant]
     Indication: HYPERURICAEMIA
  2. CALCITRIOL [Concomitant]
     Indication: HYPERPARATHYROIDISM SECONDARY
  3. BENAZEPRIL HYDROCHLORIDE [Suspect]
     Indication: HYPERTENSION
     Dosage: UNK
     Route: 048
     Dates: start: 20110322, end: 20110327
  4. TAMSULOSIN HCL [Concomitant]
     Indication: HYPERTENSION
  5. FUROSEMIDE [Concomitant]
     Indication: HYPERTENSION
  6. CALCIUM CARBONATE [Concomitant]
     Indication: HYPERPARATHYROIDISM SECONDARY
  7. ASPIRIN [Concomitant]
     Indication: PROPHYLAXIS
     Dosage: UNK
  8. AMLODIPINE [Concomitant]
     Indication: HYPERTENSION
     Dosage: UNK
  9. CARVEDILOL [Concomitant]
     Indication: HYPERTENSION
     Dosage: UNK
  10. SODIUM BICARBONATE [Concomitant]
  11. IPERTEN [Concomitant]
     Indication: HYPERTENSION
  12. INSULIN GLARGINE [Concomitant]
     Indication: DIABETES MELLITUS
  13. ATORVASTATIN CALCIUM [Concomitant]
     Indication: DYSLIPIDAEMIA
  14. REPAGLINIDE [Concomitant]
     Indication: DIABETES MELLITUS
     Dosage: UNK

REACTIONS (4)
  - PNEUMONIA [None]
  - DYSPNOEA [None]
  - RENAL FAILURE CHRONIC [None]
  - ASTHENIA [None]
